FAERS Safety Report 4273124-X (Version None)
Quarter: 2004Q1

REPORT INFORMATION
  Report Type: 
  Country: None (occurrence: None)
  Receive Date: 20040116
  Receipt Date: 20040114
  Transmission Date: 20041129
  Serious: Yes (Hospitalization)
  Sender: FDA-Public Use
  Company Number: US-GLAXOSMITHKLINE-A0493142A

PATIENT
  Age: 75 Year
  Sex: Male

DRUGS (11)
  1. TOPOTECAN [Suspect]
     Indication: ACUTE MYELOID LEUKAEMIA
     Dosage: 1.5MGM2 SEE DOSAGE TEXT
     Route: 042
  2. CYTARABINE [Suspect]
     Indication: ACUTE MYELOID LEUKAEMIA
     Dosage: 2MG SEE DOSAGE TEXT
     Route: 042
  3. CYCLOPHOSPHAMIDE [Suspect]
     Indication: ACUTE MYELOID LEUKAEMIA
     Dosage: 570MG SEE DOSAGE TEXT
     Route: 042
  4. MESNA [Suspect]
     Indication: ACUTE MYELOID LEUKAEMIA
     Dosage: 600MGM2 PER DAY
     Route: 042
  5. BACTRIM [Concomitant]
  6. DIFLUCAN [Concomitant]
  7. LEVAQUIN [Concomitant]
  8. LASIX [Concomitant]
  9. IMDUR [Concomitant]
  10. PREDNISONE [Concomitant]
  11. PREVACID [Concomitant]

REACTIONS (6)
  - ASPERGILLOSIS [None]
  - DIVERTICULITIS [None]
  - ESCHERICHIA INFECTION [None]
  - GLYCOPEPTIDE ANTIBIOTIC RESISTANT ENTEROCOCCAL INFECTION [None]
  - PYREXIA [None]
  - SEPSIS [None]
